FAERS Safety Report 6251953-0 (Version None)
Quarter: 2009Q2

REPORT INFORMATION
  Report Type: 
  Country: None (occurrence: None)
  Receive Date: 20090630
  Receipt Date: 20060629
  Transmission Date: 20091009
  Serious: Yes (Hospitalization)
  Sender: FDA-Public Use
  Company Number: US-ROCHE-638285

PATIENT
  Sex: Male

DRUGS (8)
  1. ENFUVIRTIDE [Suspect]
     Route: 065
     Dates: start: 20040209, end: 20040509
  2. ENFUVIRTIDE [Suspect]
     Route: 065
     Dates: start: 20040510, end: 20060728
  3. NORVIR [Concomitant]
     Indication: ANTIRETROVIRAL THERAPY
     Dates: start: 20040127, end: 20060728
  4. PREZISTA [Concomitant]
     Indication: ANTIRETROVIRAL THERAPY
     Dates: start: 20040127, end: 20040509
  5. PREZISTA [Concomitant]
     Dates: start: 20040510, end: 20060728
  6. EMTRIVA [Concomitant]
     Indication: ANTIRETROVIRAL THERAPY
     Dates: start: 20040209, end: 20041031
  7. VIREAD [Concomitant]
     Indication: ANTIRETROVIRAL THERAPY
     Dates: start: 20040209, end: 20041031
  8. TRUVADA [Concomitant]
     Indication: ANTIRETROVIRAL THERAPY
     Dosage: DOSE FORM: TABLET.
     Dates: start: 20041101, end: 20060728

REACTIONS (1)
  - DEEP VEIN THROMBOSIS [None]
